FAERS Safety Report 24647916 (Version 2)
Quarter: 2024Q4

REPORT INFORMATION
  Report Type: Spontaneous
  Country: US (occurrence: US)
  Receive Date: 20241121
  Receipt Date: 20241126
  Transmission Date: 20250115
  Serious: No
  Sender: PFIZER
  Company Number: US-PFIZER INC-202400304442

PATIENT
  Age: 67 Year
  Sex: Female
  Weight: 73.029 kg

DRUGS (2)
  1. PROTONIX [Suspect]
     Active Substance: PANTOPRAZOLE SODIUM
     Indication: Gastrooesophageal reflux disease
     Dosage: 40 MG, 1X/DAY
  2. PROTONIX [Suspect]
     Active Substance: PANTOPRAZOLE SODIUM
     Dosage: 40 MG, 2X/DAY
     Dates: start: 20241101, end: 20241113

REACTIONS (11)
  - Drug ineffective [Unknown]
  - Therapeutic product effect incomplete [Unknown]
  - Urine output decreased [Recovering/Resolving]
  - Visual impairment [Recovering/Resolving]
  - Paraesthesia [Unknown]
  - Hypoaesthesia [Unknown]
  - Muscle spasms [Unknown]
  - Abdominal distension [Unknown]
  - Flatulence [Unknown]
  - Weight increased [Unknown]
  - Off label use [Unknown]

NARRATIVE: CASE EVENT DATE: 20240101
